FAERS Safety Report 9695592 (Version 3)
Quarter: 2020Q3

REPORT INFORMATION
  Report Type: Other
  Country: GB (occurrence: GB)
  Receive Date: 20131119
  Receipt Date: 20200928
  Transmission Date: 20201103
  Serious: Yes (Death, Other)
  Sender: FDA-Public Use
  Company Number: GB-ROCHE-1306267

PATIENT

DRUGS (16)
  1. VINCRISTINE [Suspect]
     Active Substance: VINCRISTINE
     Indication: BURKITT^S LYMPHOMA
  2. METHOTREXATE. [Suspect]
     Active Substance: METHOTREXATE
     Indication: DIFFUSE LARGE B-CELL LYMPHOMA
     Route: 065
  3. METHOTREXATE. [Suspect]
     Active Substance: METHOTREXATE
     Indication: BURKITT^S LYMPHOMA
  4. ETOPOSIDE. [Suspect]
     Active Substance: ETOPOSIDE
     Indication: DIFFUSE LARGE B-CELL LYMPHOMA
     Route: 065
  5. ETOPOSIDE. [Suspect]
     Active Substance: ETOPOSIDE
     Indication: BURKITT^S LYMPHOMA
  6. IFOSFAMIDE. [Suspect]
     Active Substance: IFOSFAMIDE
     Indication: BURKITT^S LYMPHOMA
  7. IFOSFAMIDE. [Suspect]
     Active Substance: IFOSFAMIDE
     Indication: DIFFUSE LARGE B-CELL LYMPHOMA
     Route: 065
  8. RITUXIMAB. [Suspect]
     Active Substance: RITUXIMAB
     Indication: BURKITT^S LYMPHOMA
  9. DOXORUBICIN [Suspect]
     Active Substance: DOXORUBICIN
     Indication: DIFFUSE LARGE B-CELL LYMPHOMA
  10. CYTARABINE. [Suspect]
     Active Substance: CYTARABINE
     Indication: BURKITT^S LYMPHOMA
  11. RITUXIMAB. [Suspect]
     Active Substance: RITUXIMAB
     Indication: DIFFUSE LARGE B-CELL LYMPHOMA
     Route: 042
  12. CYCLOPHOSPHAMIDE. [Suspect]
     Active Substance: CYCLOPHOSPHAMIDE
     Indication: BURKITT^S LYMPHOMA
  13. CYTARABINE. [Suspect]
     Active Substance: CYTARABINE
     Indication: DIFFUSE LARGE B-CELL LYMPHOMA
     Route: 065
  14. DOXORUBICIN [Suspect]
     Active Substance: DOXORUBICIN
     Indication: BURKITT^S LYMPHOMA
     Route: 065
  15. CYCLOPHOSPHAMIDE. [Suspect]
     Active Substance: CYCLOPHOSPHAMIDE
     Indication: DIFFUSE LARGE B-CELL LYMPHOMA
     Route: 065
  16. VINCRISTINE [Suspect]
     Active Substance: VINCRISTINE
     Indication: DIFFUSE LARGE B-CELL LYMPHOMA
     Route: 065

REACTIONS (42)
  - Neutropenic sepsis [Fatal]
  - Leukopenia [Unknown]
  - Vomiting [Unknown]
  - Sepsis [Unknown]
  - Musculoskeletal pain [Unknown]
  - Fatigue [Unknown]
  - Diarrhoea [Unknown]
  - Central nervous system haemorrhage [Unknown]
  - Gastrointestinal pain [Unknown]
  - Cerebral haemorrhage [Fatal]
  - Neutropenia [Unknown]
  - Pain [Unknown]
  - Thrombosis [Unknown]
  - Intentional product use issue [Unknown]
  - Thrombocytopenia [Unknown]
  - Nausea [Unknown]
  - Mood altered [Unknown]
  - Off label use [Unknown]
  - Neutropenic infection [Fatal]
  - Gastrointestinal haemorrhage [Fatal]
  - Haemorrhage intracranial [Fatal]
  - Infection [Unknown]
  - Cardiac disorder [Unknown]
  - Hypokalaemia [Unknown]
  - Transaminases abnormal [Unknown]
  - Nervous system disorder [Unknown]
  - Pleural effusion [Unknown]
  - Intestinal perforation [Fatal]
  - Pneumonia [Fatal]
  - Mucosal inflammation [Unknown]
  - Blood bilirubin abnormal [Unknown]
  - Chest pain [Unknown]
  - Decreased appetite [Unknown]
  - Small intestinal perforation [Unknown]
  - Headache [Unknown]
  - Dyspnoea [Unknown]
  - Tumour lysis syndrome [Unknown]
  - Deep vein thrombosis [Unknown]
  - Anaemia [Unknown]
  - Hypotension [Unknown]
  - Pyrexia [Unknown]
  - Febrile neutropenia [Unknown]
